FAERS Safety Report 11269958 (Version 3)
Quarter: 2016Q4

REPORT INFORMATION
  Report Type: Report from Study
  Country: PL (occurrence: PL)
  Receive Date: 20150714
  Receipt Date: 20161121
  Transmission Date: 20170206
  Serious: Yes (Hospitalization)
  Sender: FDA-Public Use
  Company Number: PL-SA-2014SA161665

PATIENT
  Age: 41 Year
  Sex: Female
  Weight: 50.7 kg

DRUGS (3)
  1. REBIF [Concomitant]
     Active Substance: INTERFERON BETA-1A
  2. ALEMTUZUMAB [Suspect]
     Active Substance: ALEMTUZUMAB
     Indication: MULTIPLE SCLEROSIS
     Dosage: INTENDED DOSE: 60 MG
     Route: 065
     Dates: start: 20110509, end: 20110513
  3. ALEMTUZUMAB [Suspect]
     Active Substance: ALEMTUZUMAB
     Indication: MULTIPLE SCLEROSIS
     Dosage: INTENDED DOSE: 60 MG
     Route: 065
     Dates: start: 20120521, end: 20120523

REACTIONS (2)
  - Subdural haematoma [Recovered/Resolved]
  - Basedow^s disease [Unknown]

NARRATIVE: CASE EVENT DATE: 20140630
